FAERS Safety Report 13504057 (Version 1)
Quarter: 2017Q2

REPORT INFORMATION
  Report Type: Spontaneous
  Country: US (occurrence: US)
  Receive Date: 20170502
  Receipt Date: 20170502
  Transmission Date: 20170830
  Serious: Yes (Other)
  Sender: FDA-Public Use
  Company Number: None

PATIENT
  Age: 61 Year
  Sex: Female
  Weight: 66.15 kg

DRUGS (3)
  1. MULTIVITAMIN [Concomitant]
     Active Substance: VITAMINS
  2. SULFAMETH/HTML 800/160 MG. TB [Suspect]
     Active Substance: SULFAMETHOXAZOLE\TRIMETHOPRIM
     Indication: BLOOD URINE PRESENT
     Route: 048
     Dates: start: 20170428, end: 20170430
  3. SULFAMETH/HTML 800/160 MG. TB [Suspect]
     Active Substance: SULFAMETHOXAZOLE\TRIMETHOPRIM
     Indication: DYSURIA
     Route: 048
     Dates: start: 20170428, end: 20170430

REACTIONS (4)
  - Aphasia [None]
  - Contusion [None]
  - Myalgia [None]
  - Oropharyngeal pain [None]

NARRATIVE: CASE EVENT DATE: 20170429
